FAERS Safety Report 25525429 (Version 1)
Quarter: 2025Q3

REPORT INFORMATION
  Report Type: Spontaneous
  Country: US (occurrence: US)
  Receive Date: 20250707
  Receipt Date: 20250707
  Transmission Date: 20251020
  Serious: Yes (Other)
  Sender: PFIZER
  Company Number: US-PFIZER INC-202500134011

PATIENT
  Age: 75 Year
  Sex: Female

DRUGS (1)
  1. BRAFTOVI [Suspect]
     Active Substance: ENCORAFENIB
     Dosage: 75 MG CAPSULES TAKE 4 (300 MG TOTAL) BY MOUTH DAILY
     Route: 048
     Dates: start: 2024

REACTIONS (1)
  - Malignant neoplasm progression [Unknown]
